FAERS Safety Report 20429560 (Version 1)
Quarter: 2022Q1

REPORT INFORMATION
  Report Type: Report from Study
  Country: US (occurrence: US)
  Receive Date: 20220204
  Receipt Date: 20220204
  Transmission Date: 20220424
  Serious: Yes (Death, Hospitalization)
  Sender: FDA-Public Use
  Company Number: US-PFIZER-2020137868

PATIENT

DRUGS (16)
  1. ONCASPAR [Suspect]
     Active Substance: PEGASPARGASE
     Indication: B precursor type acute leukaemia
     Dosage: 3750 IU, UNK
     Route: 065
     Dates: start: 20190918, end: 20190918
  2. ONCASPAR [Suspect]
     Active Substance: PEGASPARGASE
     Dosage: 3750 IU, UNK
     Route: 065
     Dates: start: 20191113, end: 20191113
  3. CYCLOPHOSPHAMIDE [Suspect]
     Active Substance: CYCLOPHOSPHAMIDE
     Indication: B precursor type acute leukaemia
     Dosage: 2820 MG, UNK
     Dates: start: 20190904, end: 20190904
  4. CYCLOPHOSPHAMIDE [Suspect]
     Active Substance: CYCLOPHOSPHAMIDE
     Dosage: 2820 MG, UNK
     Dates: end: 20191008
  5. CYTARABINE [Suspect]
     Active Substance: CYTARABINE
     Indication: B precursor type acute leukaemia
     Dosage: 1694 MG, UNK
     Route: 065
     Dates: start: 20190904, end: 20190913
  6. CYTARABINE [Suspect]
     Active Substance: CYTARABINE
     Dosage: 1694 MG, UNK
     Route: 065
     Dates: end: 20191018
  7. MERCAPTOPURINE [Suspect]
     Active Substance: MERCAPTOPURINE
     Indication: B precursor type acute leukaemia
     Dosage: 2400 MG, UNK
     Route: 065
     Dates: start: 20190820, end: 20190910
  8. MERCAPTOPURINE [Suspect]
     Active Substance: MERCAPTOPURINE
     Dosage: 2400 MG, UNK
     Route: 065
     Dates: end: 20191014
  9. METHOTREXATE [Suspect]
     Active Substance: METHOTREXATE
     Indication: B precursor type acute leukaemia
     Dosage: 45 MG, UNK
     Route: 065
     Dates: start: 20190903, end: 20190918
  10. METHOTREXATE [Suspect]
     Active Substance: METHOTREXATE
     Dosage: 725 MG, UNK
     Route: 065
     Dates: end: 20191122
  11. RITUXIMAB [Suspect]
     Active Substance: RITUXIMAB
     Indication: B precursor type acute leukaemia
     Dosage: 2116 MG, UNK
     Route: 065
     Dates: start: 20190903, end: 20190911
  12. RITUXIMAB [Suspect]
     Active Substance: RITUXIMAB
     Dosage: 2130 MG, UNK
     Route: 065
     Dates: end: 20191122
  13. VINCRISTINE [Suspect]
     Active Substance: VINCRISTINE
     Indication: B precursor type acute leukaemia
     Dosage: 2 MG, UNK
     Route: 065
     Dates: start: 20190918, end: 20190918
  14. VINCRISTINE [Suspect]
     Active Substance: VINCRISTINE
     Dosage: 6 MG, UNK
     Route: 065
     Dates: end: 20191206
  15. INOTUZUMAB OZOGAMICIN [Suspect]
     Active Substance: INOTUZUMAB OZOGAMICIN
     Indication: B precursor type acute leukaemia
     Dosage: 8.5 MG
     Route: 065
     Dates: start: 20190703, end: 20190814
  16. DEXAMETHASONE [Suspect]
     Active Substance: DEXAMETHASONE
     Indication: B precursor type acute leukaemia
     Dosage: UNK
     Route: 065
     Dates: end: 20191008

REACTIONS (5)
  - Hepatic failure [Fatal]
  - Febrile neutropenia [Recovered/Resolved]
  - Acute kidney injury [Not Recovered/Not Resolved]
  - Colitis [Not Recovered/Not Resolved]
  - Enterocolitis infectious [Not Recovered/Not Resolved]

NARRATIVE: CASE EVENT DATE: 20190923
